FAERS Safety Report 8611841-9 (Version None)
Quarter: 2012Q3

REPORT INFORMATION
  Report Type: 
  Country: None (occurrence: None)
  Receive Date: 20120822
  Receipt Date: 20120813
  Transmission Date: 20120928
  Serious: Yes (Hospitalization)
  Sender: FDA-Public Use
  Company Number: US-BAYER-2011-095495

PATIENT
  Age: 43 Year
  Sex: Female
  Weight: 77.098 kg

DRUGS (14)
  1. YAZ [Suspect]
     Indication: PREMENSTRUAL SYNDROME
     Dosage: UNK
     Dates: start: 20090428, end: 20100717
  2. METHOTREXATE [Concomitant]
     Indication: ARTHRALGIA
     Dosage: 15 MG, WEEKLY
     Dates: start: 20070101
  3. XANAX [Concomitant]
     Indication: ANXIETY
     Dosage: 0.5 MG, BID AND BEDTIME
     Dates: start: 20040101
  4. REMICADE [Concomitant]
     Indication: CROHN'S DISEASE
     Dosage: 8 VIALS EVERY 4 WEEKS
     Dates: start: 20010101
  5. ZOLOFT [Concomitant]
     Dosage: 100 MG, QD
     Dates: start: 20100727
  6. TOPIRAMATE [Concomitant]
     Dosage: 25 MG, UNK
     Dates: start: 20100828
  7. KLOR-CON [Concomitant]
     Dosage: 20 MEQ, QD
     Dates: start: 20100719
  8. RESTORIL [Concomitant]
     Indication: SLEEP DISORDER
     Dosage: 30 MG, QD
     Dates: start: 20080101
  9. LORTAB [Concomitant]
     Indication: PAIN
     Dosage: 7.5-500 EVERY 4 HOURS PRN
     Dates: start: 20030101
  10. WELLBUTRIN XL [Concomitant]
     Indication: ASTHENIA
     Dosage: 150 MG, QD
     Dates: start: 20050101
  11. EFFEXOR [Concomitant]
     Indication: DEPRESSION
     Dosage: 37.5 MG, QD
     Dates: start: 20100825
  12. VALACICLOVIR [Concomitant]
     Dosage: 1 MG, QD
     Dates: start: 20100716
  13. PREDNISONE TAB [Concomitant]
     Dosage: 30 MG, QD
     Dates: start: 20100825
  14. DROSPIRENONE AND ETHINYL ESTRADIOL [Suspect]
     Indication: PREMENSTRUAL SYNDROME
     Dosage: UNK
     Dates: start: 20100718, end: 20100903

REACTIONS (6)
  - QUALITY OF LIFE DECREASED [None]
  - DEEP VEIN THROMBOSIS [None]
  - INJURY [None]
  - PAIN [None]
  - PULMONARY EMBOLISM [None]
  - FEAR OF DISEASE [None]
